FAERS Safety Report 15195960 (Version 2)
Quarter: 2018Q3

REPORT INFORMATION
  Report Type: Report from Study
  Country: JP (occurrence: JP)
  Receive Date: 20180725
  Receipt Date: 20180903
  Transmission Date: 20181010
  Serious: Yes (Death, Other)
  Sender: FDA-Public Use
  Company Number: JP-009507513-1807JPN002393J

PATIENT
  Age: 67 Year
  Sex: Male
  Weight: 64 kg

DRUGS (6)
  1. LOXOPROFEN [Concomitant]
     Active Substance: LOXOPROFEN
     Indication: TRANSITIONAL CELL CARCINOMA
     Dosage: 60 MG, PRN
     Route: 048
     Dates: start: 20171220, end: 20180314
  2. CELECOX [Concomitant]
     Active Substance: CELECOXIB
     Indication: TRANSITIONAL CELL CARCINOMA
     Dosage: 100 MG, BID
     Route: 048
     Dates: start: 20180131, end: 20180424
  3. REBAMIPIDE [Concomitant]
     Active Substance: REBAMIPIDE
     Indication: TRANSITIONAL CELL CARCINOMA
     Dosage: 100 MG, PRN
     Route: 048
     Dates: start: 20171226, end: 2018
  4. OXINORM [Concomitant]
     Indication: TRANSITIONAL CELL CARCINOMA
     Dosage: 5 MG, PRN
     Route: 048
     Dates: start: 20180404, end: 20180424
  5. OXYCONTIN [Concomitant]
     Active Substance: OXYCODONE HYDROCHLORIDE
     Indication: TRANSITIONAL CELL CARCINOMA
     Dosage: 10 MG, BID
     Route: 048
     Dates: start: 20180416, end: 20180424
  6. KEYTRUDA [Suspect]
     Active Substance: PEMBROLIZUMAB
     Indication: TRANSITIONAL CELL CARCINOMA
     Dosage: 200 MG, Q3W
     Route: 041
     Dates: start: 20180110, end: 20180404

REACTIONS (1)
  - Malignant neoplasm progression [Fatal]

NARRATIVE: CASE EVENT DATE: 2018
